FAERS Safety Report 19364518 (Version 2)
Quarter: 2021Q2

REPORT INFORMATION
  Report Type: Spontaneous
  Country: US (occurrence: US)
  Receive Date: 20210603
  Receipt Date: 20210608
  Transmission Date: 20210717
  Serious: No
  Sender: FDA-Public Use
  Company Number: US-JNJFOC-20210547754

PATIENT
  Age: 64 Year
  Sex: Female
  Weight: 63.5 kg

DRUGS (9)
  1. IBUPROFEN. [Concomitant]
     Active Substance: IBUPROFEN
     Indication: BONE PAIN
  2. ADVIL [Concomitant]
     Active Substance: IBUPROFEN
     Indication: MYALGIA
     Route: 065
     Dates: start: 202104
  3. HYDROCODONE [Concomitant]
     Active Substance: HYDROCODONE
     Indication: BONE PAIN
     Route: 065
     Dates: start: 202104
  4. ADVIL [Concomitant]
     Active Substance: IBUPROFEN
     Indication: BONE PAIN
  5. TYLENOL [Suspect]
     Active Substance: ACETAMINOPHEN
     Indication: MYALGIA
     Route: 065
     Dates: start: 202104
  6. TYLENOL [Suspect]
     Active Substance: ACETAMINOPHEN
     Indication: BONE PAIN
  7. IBUPROFEN. [Concomitant]
     Active Substance: IBUPROFEN
     Indication: MYALGIA
     Route: 065
     Dates: start: 202104
  8. HYDROCODONE [Concomitant]
     Active Substance: HYDROCODONE
     Indication: MYALGIA
  9. COVID?19 VACCINE [Concomitant]
     Indication: PRODUCT USED FOR UNKNOWN INDICATION
     Route: 065
     Dates: start: 20210426

REACTIONS (1)
  - Drug ineffective [Unknown]

NARRATIVE: CASE EVENT DATE: 202104
